FAERS Safety Report 25277049 (Version 2)
Quarter: 2025Q2

REPORT INFORMATION
  Report Type: Report from Study
  Country: CA (occurrence: CA)
  Receive Date: 20250507
  Receipt Date: 20250514
  Transmission Date: 20250717
  Serious: Yes (Death)
  Sender: ABBVIE
  Company Number: CA-ABBVIE-6269736

PATIENT
  Age: 82 Year
  Sex: Male

DRUGS (1)
  1. RINVOQ [Suspect]
     Active Substance: UPADACITINIB
     Indication: Dermatitis atopic
     Dosage: FORM STRENGTH: 15 MILLIGRAM
     Route: 048

REACTIONS (1)
  - Death [Fatal]

NARRATIVE: CASE EVENT DATE: 20250401
